FAERS Safety Report 9608805 (Version 1)
Quarter: 2013Q4

REPORT INFORMATION
  Report Type: Spontaneous
  Country: US (occurrence: None)
  Receive Date: 20131007
  Receipt Date: 20131007
  Transmission Date: 20140711
  Serious: No
  Sender: FDA-Public Use
  Company Number: None

PATIENT
  Age: 62 Year
  Sex: Female
  Weight: 70 kg

DRUGS (12)
  1. LEVOTHYROXINE 100MCG + POTASSIUM IODIDE [Suspect]
     Indication: HYPOTHYROIDISM
     Dosage: 1 TABLET, QD, ORAL
     Route: 048
     Dates: start: 20130912, end: 20130921
  2. LEVOTHYROXINE [Suspect]
     Indication: HYPOTHYROIDISM
     Dosage: 1 TABLET, QD, ORAL
     Route: 048
     Dates: start: 20130912, end: 20130921
  3. MEROPENEM 1000MG [Concomitant]
  4. VANCOMYCIN 1500MG [Concomitant]
  5. FLUCONAZOLE 200MG [Concomitant]
  6. METOPROLOL TARTRATE 25 MG [Concomitant]
  7. LISINOPRIL 20MG [Concomitant]
  8. ENOXAPARIN 40MG [Concomitant]
  9. METOCLOPRAMIDE 5MG [Concomitant]
  10. PANTOPRAZOLE 40MG [Concomitant]
  11. PRAVASTATIN 40MG [Concomitant]
  12. CILOSTAZOLE 100MG [Concomitant]

REACTIONS (2)
  - Sepsis [None]
  - Encephalopathy [None]
